FAERS Safety Report 9885260 (Version 4)
Quarter: 2014Q2

REPORT INFORMATION
  Report Type: Spontaneous
  Country: US (occurrence: US)
  Receive Date: 20140210
  Receipt Date: 20140403
  Transmission Date: 20141212
  Serious: Yes (Other)
  Sender: FDA-Public Use
  Company Number: US-PFIZER INC-2014034861

PATIENT
  Sex: 0

DRUGS (1)
  1. NEURONTIN [Suspect]
     Dosage: UNK

REACTIONS (2)
  - Tooth disorder [Unknown]
  - Ear infection [Unknown]
